FAERS Safety Report 16662840 (Version 2)
Quarter: 2020Q1

REPORT INFORMATION
  Report Type: Report from Study
  Country: US (occurrence: US)
  Receive Date: 20190802
  Receipt Date: 20200129
  Transmission Date: 20200409
  Serious: No
  Sender: FDA-Public Use
  Company Number: US-EXELIXIS-CABO-19019300

PATIENT
  Sex: Female

DRUGS (1)
  1. CABOMETYX [Suspect]
     Active Substance: CABOZANTINIB S-MALATE
     Indication: RENAL CANCER
     Dosage: 20 MG, UNK

REACTIONS (8)
  - Rash [Unknown]
  - Fatigue [Unknown]
  - White blood cell count decreased [Unknown]
  - Hepatic lesion [Unknown]
  - Anaemia [Unknown]
  - Abdominal pain [Unknown]
  - Colitis ulcerative [Unknown]
  - Alopecia [Unknown]
